FAERS Safety Report 7584147-7 (Version None)
Quarter: 2011Q2

REPORT INFORMATION
  Report Type: 
  Country: None (occurrence: None)
  Receive Date: 20110630
  Receipt Date: 20110629
  Transmission Date: 20111010
  Serious: Yes (Other)
  Sender: FDA-Public Use
  Company Number: US-PFIZER INC-2011145153

PATIENT
  Sex: Female
  Weight: 63.492 kg

DRUGS (6)
  1. VENLAFAXINE HYDROCHLORIDE [Concomitant]
     Indication: DEPRESSION
     Dosage: 200 MG, DAILY
     Route: 048
  2. CITALOPRAM HYDROBROMIDE [Concomitant]
     Indication: DEPRESSION
     Dosage: 20 MG, DAILY
     Route: 048
  3. GEODON [Suspect]
     Indication: BIPOLAR DISORDER
  4. EFFEXOR [Suspect]
     Indication: DEPRESSION
     Dosage: UNK
     Route: 048
  5. GEODON [Suspect]
     Indication: DEPRESSION
     Dosage: 80MG, DAILY
     Route: 048
     Dates: start: 20070201
  6. TRAZODONE [Concomitant]
     Indication: DEPRESSION
     Dosage: 50 MG, DAILY
     Route: 048

REACTIONS (2)
  - BIPOLAR DISORDER [None]
  - INSOMNIA [None]
